FAERS Safety Report 8900635 (Version 1)
Quarter: 2012Q4

REPORT INFORMATION
  Report Type: Report from Study
  Country: US (occurrence: US)
  Receive Date: 20121109
  Receipt Date: 20121109
  Transmission Date: 20130627
  Serious: Yes (Other)
  Sender: FDA-Public Use
  Company Number: US-BAXTER-2012BAX023396

PATIENT
  Sex: Male
  Weight: 97.73 kg

DRUGS (8)
  1. ARALAST NP [Suspect]
     Indication: ALPHA-1 ANTI-TRYPSIN DEFICIENCY
     Route: 042
  2. PREDNISONE [Concomitant]
     Indication: DRUG USE FOR UNKNOWN INDICATION
  3. FENOFIBRATE [Concomitant]
     Indication: DRUG USE FOR UNKNOWN INDICATION
  4. COMBIVENT [Concomitant]
     Indication: DRUG USE FOR UNKNOWN INDICATION
  5. ADVAIR [Concomitant]
     Indication: DRUG USE FOR UNKNOWN INDICATION
  6. FLUCONAZOLE [Concomitant]
     Indication: INFECTION PROPHYLAXIS
  7. PROGRAF [Concomitant]
     Indication: LUNG TRANSPLANT
  8. PROGRAF [Concomitant]

REACTIONS (2)
  - Gastric disorder [Recovered/Resolved]
  - Pneumonia [Recovered/Resolved]
